FAERS Safety Report 25315427 (Version 1)
Quarter: 2025Q2

REPORT INFORMATION
  Report Type: Spontaneous
  Country: NZ (occurrence: NZ)
  Receive Date: 20250514
  Receipt Date: 20250514
  Transmission Date: 20250716
  Serious: Yes (Life-Threatening)
  Sender: MERCK SHARP & DOHME LLC
  Company Number: NZ-009507513-2284391

PATIENT
  Sex: Male

DRUGS (1)
  1. PEMBROLIZUMAB [Suspect]
     Active Substance: PEMBROLIZUMAB
     Indication: Metastatic malignant melanoma
     Route: 042
     Dates: start: 20250106, end: 20250205

REACTIONS (3)
  - Myasthenia gravis [Not Recovered/Not Resolved]
  - Myocarditis [Not Recovered/Not Resolved]
  - Myositis [Not Recovered/Not Resolved]
